FAERS Safety Report 25611146 (Version 1)
Quarter: 2025Q3

REPORT INFORMATION
  Report Type: Spontaneous
  Country: EU (occurrence: EU)
  Receive Date: 20250728
  Receipt Date: 20250728
  Transmission Date: 20251020
  Serious: Yes (Other)
  Sender: AUROBINDO
  Company Number: EU-AUROBINDO-AUR-APL-2023-006331

PATIENT
  Age: 41 Year
  Sex: Female

DRUGS (17)
  1. CLOPIDOGREL [Suspect]
     Active Substance: CLOPIDOGREL BISULFATE
     Indication: Device related thrombosis
     Route: 065
  2. CLOPIDOGREL [Suspect]
     Active Substance: CLOPIDOGREL BISULFATE
     Indication: Hepatic artery thrombosis
  3. ASPIRIN [Suspect]
     Active Substance: ASPIRIN
     Indication: Device related thrombosis
     Route: 065
  4. ASPIRIN [Suspect]
     Active Substance: ASPIRIN
     Indication: Hepatic artery thrombosis
  5. BEVACIZUMAB [Suspect]
     Active Substance: BEVACIZUMAB
     Indication: Metastases to liver
     Route: 042
     Dates: start: 2016
  6. BEVACIZUMAB [Suspect]
     Active Substance: BEVACIZUMAB
     Route: 042
     Dates: start: 2017
  7. FLUOROURACIL [Concomitant]
     Active Substance: FLUOROURACIL
     Indication: Product used for unknown indication
     Route: 065
     Dates: start: 2017
  8. UROKINASE [Concomitant]
     Active Substance: UROKINASE
     Indication: Hepatic artery thrombosis
     Route: 065
  9. UROKINASE [Concomitant]
     Active Substance: UROKINASE
     Indication: Device related thrombosis
  10. TRASTUZUMAB [Concomitant]
     Active Substance: TRASTUZUMAB
     Indication: Product used for unknown indication
     Route: 065
  11. UNSPECIFIED INGREDIENT [Concomitant]
     Active Substance: UNSPECIFIED INGREDIENT
     Indication: Deep vein thrombosis
     Route: 065
     Dates: start: 2021
  12. UNSPECIFIED INGREDIENT [Concomitant]
     Active Substance: UNSPECIFIED INGREDIENT
     Indication: Jugular vein thrombosis
  13. EDOXABAN [Concomitant]
     Active Substance: EDOXABAN
     Indication: Deep vein thrombosis
     Dosage: 30 MILLIGRAM, ONCE A DAY
     Route: 065
  14. EDOXABAN [Concomitant]
     Active Substance: EDOXABAN
     Indication: Jugular vein thrombosis
  15. ENOXAPARIN [Concomitant]
     Active Substance: ENOXAPARIN
     Indication: Hepatic artery thrombosis
     Dosage: 100 INTERNATIONAL UNIT/KILOGRAM, ONCE A DAY
     Route: 065
  16. ENOXAPARIN [Concomitant]
     Active Substance: ENOXAPARIN
     Indication: Device related thrombosis
  17. PARNAPARIN [Concomitant]
     Active Substance: PARNAPARIN
     Indication: Product used for unknown indication
     Dosage: 6400 INTERNATIONAL UNIT, ONCE A DAY
     Route: 065

REACTIONS (1)
  - Drug ineffective [Unknown]

NARRATIVE: CASE EVENT DATE: 20200101
